FAERS Safety Report 8572911 (Version 3)
Quarter: 2013Q3

REPORT INFORMATION
  Report Type: Report from Study
  Country: IN (occurrence: IN)
  Receive Date: 20120522
  Receipt Date: 20130719
  Transmission Date: 20140515
  Serious: Yes (Other)
  Sender: FDA-Public Use
  Company Number: PHHY2012IN043064

PATIENT
  Age: 40 Year
  Sex: Male

DRUGS (1)
  1. GLIVEC [Suspect]
     Indication: CHRONIC MYELOID LEUKAEMIA
     Dosage: 400 MG, UNK
     Route: 048

REACTIONS (6)
  - Nephrolithiasis [Unknown]
  - Pain [Unknown]
  - Nasopharyngitis [Unknown]
  - Asthenia [Unknown]
  - Cough [Unknown]
  - Malaise [Unknown]
